FAERS Safety Report 9979549 (Version 2)
Quarter: 2014Q1

REPORT INFORMATION
  Report Type: Report from Study
  Country: US (occurrence: US)
  Receive Date: 20140306
  Receipt Date: 20140306
  Transmission Date: 20141002
  Serious: No
  Sender: FDA-Public Use
  Company Number: US-ABBVIE-13P-163-1133224-00

PATIENT
  Age: 26 Year
  Sex: Female

DRUGS (4)
  1. HUMIRA [Suspect]
     Indication: COLITIS ULCERATIVE
     Dates: start: 201212, end: 201303
  2. HUMIRA [Suspect]
     Dates: start: 201303, end: 201307
  3. HUMIRA [Suspect]
     Dates: start: 201307
  4. PROPRANOLOL [Concomitant]
     Indication: SUPRAVENTRICULAR TACHYCARDIA
     Dosage: 10 MG DAILY

REACTIONS (8)
  - Incorrect dose administered [Unknown]
  - Colitis ulcerative [Recovered/Resolved]
  - Injection site urticaria [Not Recovered/Not Resolved]
  - Alopecia [Unknown]
  - Diarrhoea [Unknown]
  - Defaecation urgency [Unknown]
  - Gastrointestinal pain [Unknown]
  - Injection site pain [Recovered/Resolved]
